FAERS Safety Report 17925422 (Version 1)
Quarter: 2020Q2

REPORT INFORMATION
  Report Type: Spontaneous
  Country: CN (occurrence: CN)
  Receive Date: 20200623
  Receipt Date: 20200623
  Transmission Date: 20200714
  Serious: Yes (Other)
  Sender: FDA-Public Use
  Company Number: CN-ROCHE-2628122

PATIENT
  Age: 57 Year
  Sex: Female

DRUGS (7)
  1. OXALIPLATIN. [Concomitant]
     Active Substance: OXALIPLATIN
     Route: 042
     Dates: start: 201809, end: 201903
  2. AVASTIN [Suspect]
     Active Substance: BEVACIZUMAB
     Indication: ADENOCARCINOMA OF COLON
     Route: 065
     Dates: start: 20140501
  3. IRINOTECAN [Concomitant]
     Active Substance: IRINOTECAN
     Route: 041
     Dates: start: 20160901
  4. FLUOROURACIL. [Concomitant]
     Active Substance: FLUOROURACIL
     Route: 048
     Dates: start: 20160901
  5. XELODA [Concomitant]
     Active Substance: CAPECITABINE
     Route: 048
     Dates: start: 20140501
  6. REGORAFENIB. [Concomitant]
     Active Substance: REGORAFENIB
     Route: 065
     Dates: start: 201804, end: 201809
  7. OXALIPLATIN. [Concomitant]
     Active Substance: OXALIPLATIN
     Route: 042
     Dates: start: 201405, end: 201408

REACTIONS (7)
  - Dysphonia [Unknown]
  - Palmar-plantar erythrodysaesthesia syndrome [Unknown]
  - Hypertension [Unknown]
  - Bone marrow failure [Unknown]
  - Asthenia [Unknown]
  - Diarrhoea [Unknown]
  - Platelet count decreased [Unknown]
